FAERS Safety Report 14632210 (Version 1)
Quarter: 2018Q1

REPORT INFORMATION
  Report Type: Spontaneous
  Country: FR (occurrence: FR)
  Receive Date: 20180313
  Receipt Date: 20180313
  Transmission Date: 20180509
  Serious: Yes (Other)
  Sender: FDA-Public Use
  Company Number: FR-TEVA-2018-FR-867372

PATIENT
  Age: 47 Year
  Sex: Female
  Weight: 89 kg

DRUGS (6)
  1. DALACINE [Concomitant]
     Active Substance: CLINDAMYCIN HYDROCHLORIDE
     Route: 048
  2. ZYVOXID 600 MG, COATED TABLET [Suspect]
     Active Substance: LINEZOLID
     Indication: RASH
     Route: 048
  3. ZELITREX 500 MG, COATED TABLET [Concomitant]
     Route: 048
  4. FUCIDINE [Concomitant]
     Active Substance: FUSIDIC ACID
     Route: 061
  5. AMOXICILLIN. [Suspect]
     Active Substance: AMOXICILLIN
     Indication: ERYSIPELAS
     Route: 048
  6. AUGMENTIN [Concomitant]
     Active Substance: AMOXICILLIN\CLAVULANATE POTASSIUM
     Route: 048

REACTIONS (3)
  - Rash erythematous [Recovering/Resolving]
  - Rash macular [Not Recovered/Not Resolved]
  - Pruritus [Not Recovered/Not Resolved]
